FAERS Safety Report 22653718 (Version 1)
Quarter: 2023Q2

REPORT INFORMATION
  Report Type: Spontaneous
  Country: GB (occurrence: GB)
  Receive Date: 20230629
  Receipt Date: 20230629
  Transmission Date: 20230722
  Serious: Yes (Congenital Anomaly)
  Sender: FDA-Public Use
  Company Number: GB-MHRA-MED-202306222059329770-MZNWD

PATIENT
  Sex: Female
  Weight: 57 kg

DRUGS (3)
  1. CLARITHROMYCIN [Suspect]
     Active Substance: CLARITHROMYCIN
     Indication: Staphylococcus test positive
     Dosage: 500 MG, BID
     Route: 065
     Dates: start: 20230617
  2. GENTAMICIN [Concomitant]
     Active Substance: GENTAMICIN
     Indication: Otitis externa
     Dosage: UNK
     Route: 065
  3. HYDROCORTISONE [Concomitant]
     Active Substance: HYDROCORTISONE
     Indication: Otitis externa
     Dosage: UNK
     Route: 065

REACTIONS (1)
  - Hypoglycaemia [Recovered/Resolved]

NARRATIVE: CASE EVENT DATE: 20230620
